FAERS Safety Report 21650964 (Version 2)
Quarter: 2022Q4

REPORT INFORMATION
  Report Type: Spontaneous
  Country: ET (occurrence: ET)
  Receive Date: 20221128
  Receipt Date: 20221129
  Transmission Date: 20230113
  Serious: Yes (Other)
  Sender: FDA-Public Use
  Company Number: ET-PFIZER INC-202201318870

PATIENT
  Age: 39 Year
  Sex: Female

DRUGS (5)
  1. AZITHROMYCIN [Suspect]
     Active Substance: AZITHROMYCIN
     Dosage: UNK
  2. DEXAMETHASONE [Suspect]
     Active Substance: DEXAMETHASONE
     Dosage: 6 MG, DAILY
     Route: 042
  3. PREDNISOLONE [Suspect]
     Active Substance: PREDNISOLONE
     Dosage: 20 MG, DAILY
     Route: 048
  4. VANCOMYCIN [Suspect]
     Active Substance: VANCOMYCIN
     Dosage: RENAL DOSE ADJUSTED
  5. CEFTRIAXONE\SULBACTAM [Suspect]
     Active Substance: CEFTRIAXONE\SULBACTAM
     Dosage: 1.5 G, 2X/DAY
     Route: 042

REACTIONS (1)
  - Rhinocerebral mucormycosis [Unknown]
